FAERS Safety Report 24049594 (Version 3)
Quarter: 2025Q1

REPORT INFORMATION
  Report Type: Spontaneous
  Country: US (occurrence: US)
  Receive Date: 20240704
  Receipt Date: 20250124
  Transmission Date: 20250409
  Serious: No
  Sender: GLAXOSMITHKLINE
  Company Number: US-GSKCCFUS-Case-02033759_AE-112778

PATIENT
  Sex: Female
  Weight: 69.388 kg

DRUGS (2)
  1. TRELEGY ELLIPTA [Suspect]
     Active Substance: FLUTICASONE FUROATE\UMECLIDINIUM BROMIDE\VILANTEROL TRIFENATATE
     Indication: Product used for unknown indication
     Dosage: 1 PUFF(S), QD, 100/62.5/25 MCG
     Route: 055
     Dates: start: 20230908, end: 20240426
  2. ALBUTEROL SULFATE [Concomitant]
     Active Substance: ALBUTEROL SULFATE
     Indication: Product used for unknown indication

REACTIONS (4)
  - Dyspnoea [Unknown]
  - Wrong technique in device usage process [Unknown]
  - Product complaint [Unknown]
  - Product dose omission issue [Unknown]
